FAERS Safety Report 8058557-8 (Version None)
Quarter: 2012Q1

REPORT INFORMATION
  Report Type: 
  Country: None (occurrence: None)
  Receive Date: 20120120
  Receipt Date: 20120112
  Transmission Date: 20120608
  Serious: Yes (Other)
  Sender: FDA-Public Use
  Company Number: US-PFIZER INC-2012010066

PATIENT
  Sex: Female
  Weight: 136.5 kg

DRUGS (17)
  1. CELEBREX [Suspect]
     Indication: BACK PAIN
  2. CELEBREX [Suspect]
     Indication: ARTHRITIS
  3. LYRICA [Suspect]
     Indication: MUSCLE SPASMS
  4. FLECAINIDE [Concomitant]
     Dosage: 100 MG, 2X/DAY
  5. CELEBREX [Suspect]
     Indication: SPONDYLITIS
  6. CELEBREX [Suspect]
     Indication: MUSCLE SPASMS
  7. LYRICA [Suspect]
     Indication: HYPOAESTHESIA
  8. CELEBREX [Suspect]
     Indication: NEURALGIA
     Dosage: 200 MG, 2X/DAY
     Route: 048
     Dates: start: 20101201, end: 20110601
  9. ACTOS [Concomitant]
     Indication: DIABETES MELLITUS
     Dosage: 30 MG, 1X/DAY
  10. LYRICA [Suspect]
     Indication: NEURALGIA
     Dosage: 100 MG, 3X/DAY
     Route: 048
     Dates: start: 20101201, end: 20110601
  11. LYRICA [Suspect]
     Indication: BACK PAIN
  12. LYRICA [Suspect]
     Indication: ARTHRITIS
  13. LASIX [Concomitant]
     Dosage: UNK
  14. CELEBREX [Suspect]
     Indication: HYPOAESTHESIA
  15. LYRICA [Suspect]
     Indication: SPONDYLITIS
  16. BACLOFEN [Concomitant]
     Dosage: 10 MG, 4X/DAY
  17. TRAMADOL [Concomitant]
     Dosage: UNK

REACTIONS (4)
  - PAIN [None]
  - NEOPLASM MALIGNANT [None]
  - THYROID FUNCTION TEST ABNORMAL [None]
  - POLLAKIURIA [None]
